FAERS Safety Report 16098440 (Version 1)
Quarter: 2019Q1

REPORT INFORMATION
  Report Type: Report from Study
  Country: None (occurrence: CA)
  Receive Date: 20190321
  Receipt Date: 20190321
  Transmission Date: 20190418
  Serious: Yes (Hospitalization)
  Sender: FDA-Public Use
  Company Number: CA-ABBVIE-19K-028-2712528-00

PATIENT
  Sex: Male

DRUGS (1)
  1. HUMIRA [Suspect]
     Active Substance: ADALIMUMAB
     Indication: PSORIATIC ARTHROPATHY
     Route: 058
     Dates: end: 20190317

REACTIONS (3)
  - Foot deformity [Recovered/Resolved]
  - Psoriasis [Not Recovered/Not Resolved]
  - Limb reconstructive surgery [Unknown]

NARRATIVE: CASE EVENT DATE: 2019
